FAERS Safety Report 8825388 (Version 2)
Quarter: 2012Q4

REPORT INFORMATION
  Report Type: 
  Country: DE (occurrence: DE)
  Receive Date: 20121004
  Receipt Date: 20121106
  Transmission Date: 20130627
  Serious: Yes (Other)
  Sender: FDA-Public Use
  Company Number: DE-BRISTOL-MYERS SQUIBB COMPANY-17001934

PATIENT
  Age: 67 Year
  Sex: Female

DRUGS (1)
  1. APROVEL TABS 150 MG [Suspect]
     Route: 048

REACTIONS (1)
  - Glioblastoma [Unknown]
